FAERS Safety Report 11496226 (Version 1)
Quarter: 2015Q3

REPORT INFORMATION
  Report Type: Spontaneous
  Country: FR (occurrence: SE)
  Receive Date: 20150911
  Receipt Date: 20150911
  Transmission Date: 20151125
  Serious: Yes (Life-Threatening)
  Sender: FDA-Public Use
  Company Number: SE-FRI-1000079329

PATIENT
  Age: 66 Year
  Sex: Male

DRUGS (1)
  1. CAMPRAL [Suspect]
     Active Substance: ACAMPROSATE CALCIUM
     Indication: PRODUCT USED FOR UNKNOWN INDICATION
     Dosage: 1998 MG
     Dates: start: 20150609

REACTIONS (4)
  - Mood altered [Recovered/Resolved]
  - Alcoholism [Recovered/Resolved]
  - Alcohol abuse [Recovered/Resolved]
  - Thinking abnormal [Recovered/Resolved]

NARRATIVE: CASE EVENT DATE: 20150609
